FAERS Safety Report 4686973-0 (Version None)
Quarter: 2005Q2

REPORT INFORMATION
  Report Type: 
  Country: None (occurrence: None)
  Receive Date: 20050606
  Receipt Date: 20050524
  Transmission Date: 20051028
  Serious: Yes (Death, Hospitalization)
  Sender: FDA-Public Use
  Company Number: 2005063347

PATIENT
  Age: 62 Year
  Sex: Female
  Weight: 108 kg

DRUGS (11)
  1. NEURONTIN [Suspect]
     Indication: DIABETIC NEUROPATHY
     Dosage: (DAILY), ORAL
     Route: 048
     Dates: start: 20041101, end: 20050125
  2. ZOLOFT [Concomitant]
  3. ALL OTHER THERAPEUTIC PRODUCTS (ALL OTHER THERAPEUTIC PRODUCTS) [Concomitant]
  4. ACETYLSALICYLIC ACID SRT [Concomitant]
  5. ENDEP [Concomitant]
  6. FUROSEMIDE [Concomitant]
  7. GLICLAZIDE 9GLICLAZIDE) [Concomitant]
  8. KARVEA (IRBESARTAN) [Concomitant]
  9. LIPITOR [Concomitant]
  10. METFORMIN HCL [Concomitant]
  11. NORVASC [Concomitant]

REACTIONS (4)
  - CIRCULATORY COLLAPSE [None]
  - FEELING ABNORMAL [None]
  - HYPOKINESIA [None]
  - PULMONARY OEDEMA [None]
